FAERS Safety Report 9843440 (Version 1)
Quarter: 2013Q4

REPORT INFORMATION
  Report Type: Spontaneous
  Country: US (occurrence: None)
  Receive Date: 20131223
  Receipt Date: 20131223
  Transmission Date: 20140711
  Serious: Yes (Other)
  Sender: FDA-Public Use
  Company Number: 222527LEO

PATIENT
  Age: 58 Year
  Sex: Male

DRUGS (1)
  1. PICATO (0.05 %) [Suspect]
     Indication: ACTINIC KERATOSIS
     Dosage: FOR 2 DAYS, ON RIGHT THIGH
     Dates: start: 20130627, end: 20130628

REACTIONS (1)
  - No adverse event [None]
